FAERS Safety Report 4882165-0 (Version None)
Quarter: 2006Q1

REPORT INFORMATION
  Report Type: 
  Country: None (occurrence: None)
  Receive Date: 20060117
  Receipt Date: 20050919
  Transmission Date: 20060701
  Serious: Yes (Hospitalization)
  Sender: FDA-Public Use
  Company Number: US-MERCK-0509USA02601

PATIENT
  Age: 73 Year
  Sex: Female

DRUGS (3)
  1. VIOXX [Suspect]
     Indication: TENDONITIS
     Route: 048
     Dates: start: 19990808, end: 20030925
  2. MAXZIDE [Concomitant]
     Route: 065
  3. NEXIUM [Concomitant]
     Route: 065

REACTIONS (23)
  - ANAEMIA [None]
  - ANGINA PECTORIS [None]
  - CARDIAC FLUTTER [None]
  - CARDIOVASCULAR DISORDER [None]
  - CHEST DISCOMFORT [None]
  - CORONARY ARTERY DISEASE [None]
  - ELECTROCARDIOGRAM QT PROLONGED [None]
  - FATIGUE [None]
  - GOUT [None]
  - HAEMORRHAGE [None]
  - HYPERTENSION [None]
  - HYPOTHERMIA [None]
  - LABORATORY TEST ABNORMAL [None]
  - MYOCARDIAL INFARCTION [None]
  - MYOCARDIAL ISCHAEMIA [None]
  - OSTEOARTHRITIS [None]
  - PLATELET FUNCTION TEST ABNORMAL [None]
  - POST PROCEDURAL HAEMORRHAGE [None]
  - RENAL DISORDER [None]
  - SINUS BRADYCARDIA [None]
  - SNEEZING [None]
  - SUPRAVENTRICULAR EXTRASYSTOLES [None]
  - VENTRICULAR EXTRASYSTOLES [None]
